FAERS Safety Report 8333721-9 (Version None)
Quarter: 2012Q2

REPORT INFORMATION
  Report Type: 
  Country: None (occurrence: None)
  Receive Date: 20120503
  Receipt Date: 20120427
  Transmission Date: 20120825
  Serious: Yes (Life-Threatening, Other)
  Sender: FDA-Public Use
  Company Number: JP-ASTRAZENECA-2012SE25661

PATIENT
  Age: 68 Year
  Sex: Female

DRUGS (12)
  1. MARCAINE [Suspect]
     Indication: LOCAL ANAESTHESIA
     Dosage: DOSE UNKNOWN
     Route: 014
  2. MARCAINE [Suspect]
     Dosage: DOSE UNKNOWN
     Route: 065
  3. NEUROTROPIN [Suspect]
     Dosage: DOSE UNKNOWN
     Route: 008
  4. MARCAINE [Suspect]
     Indication: EPIDURAL ANAESTHESIA
     Dosage: DOSE UNKNOWN
     Route: 014
  5. ELCITONIN [Suspect]
     Indication: LOCAL ANAESTHESIA
     Dosage: DOSE UNKNOWN
     Route: 065
  6. MARCAINE [Suspect]
     Dosage: DOSE UNKNOWN
     Route: 065
  7. NEUROTROPIN [Suspect]
     Indication: LOCAL ANAESTHESIA
     Dosage: DOSE UNKNOWN
     Route: 065
  8. NEUROTROPIN [Suspect]
     Dosage: DOSE UNKNOWN
     Route: 008
  9. NEUROTROPIN [Suspect]
     Indication: EPIDURAL ANAESTHESIA
     Dosage: DOSE UNKNOWN
     Route: 065
  10. MARCAINE [Suspect]
     Dosage: DOSE UNKNOWN
     Route: 008
  11. MARCAINE [Suspect]
     Dosage: DOSE UNKNOWN
     Route: 008
  12. ADANT [Suspect]
     Indication: LOCAL ANAESTHESIA
     Dosage: DOSE UNKNOWN
     Route: 014

REACTIONS (1)
  - PHARYNGEAL OEDEMA [None]
